FAERS Safety Report 5801275-4 (Version None)
Quarter: 2008Q3

REPORT INFORMATION
  Report Type: 
  Country: None (occurrence: None)
  Receive Date: 20080703
  Receipt Date: 20080703
  Transmission Date: 20090109
  Serious: Yes (Life-Threatening, Disabling, Other)
  Sender: FDA-Public Use
  Company Number: None

PATIENT
  Sex: Female
  Weight: 82.1011 kg

DRUGS (1)
  1. SEROQUEL [Suspect]
     Indication: INSOMNIA
     Dosage: 300 MG A NIGHT
     Dates: start: 20060101, end: 20070101

REACTIONS (1)
  - DIABETES MELLITUS [None]
